FAERS Safety Report 12433301 (Version 1)
Quarter: 2016Q2

REPORT INFORMATION
  Report Type: Spontaneous
  Country: US (occurrence: None)
  Receive Date: 20160602
  Receipt Date: 20160602
  Transmission Date: 20160815
  Serious: No
  Sender: FDA-Public Use
  Company Number: None

PATIENT
  Age: 63 Year
  Sex: Male

DRUGS (1)
  1. SOVALDI [Suspect]
     Active Substance: SOFOSBUVIR

REACTIONS (6)
  - Refusal of treatment by patient [None]
  - Depression [None]
  - Paraesthesia [None]
  - Hyperhidrosis [None]
  - Chills [None]
  - Presyncope [None]

NARRATIVE: CASE EVENT DATE: 20160531
